FAERS Safety Report 15986291 (Version 1)
Quarter: 2019Q1

REPORT INFORMATION
  Report Type: Spontaneous
  Country: FR (occurrence: FR)
  Receive Date: 20190220
  Receipt Date: 20190220
  Transmission Date: 20190418
  Serious: Yes (Hospitalization, Other)
  Sender: FDA-Public Use
  Company Number: FR-OTSUKA-2019_004517

PATIENT
  Age: 14 Year
  Sex: Male
  Weight: 47 kg

DRUGS (6)
  1. BUSILVEX [Suspect]
     Active Substance: BUSULFAN
     Dosage: 156 MG, UNK
     Route: 042
     Dates: start: 20141009, end: 20141009
  2. BUSILVEX [Suspect]
     Active Substance: BUSULFAN
     Dosage: UNK MG, UNK
     Route: 042
     Dates: start: 20141007, end: 20141007
  3. FOLIC ACID. [Concomitant]
     Active Substance: FOLIC ACID
     Indication: SUPPLEMENTATION THERAPY
     Dosage: UNK
     Route: 048
     Dates: start: 20141216, end: 201504
  4. BUSILVEX [Suspect]
     Active Substance: BUSULFAN
     Indication: CHEMOTHERAPY
     Dosage: 93.6 MG, UNK
     Route: 042
     Dates: start: 20141010, end: 20141010
  5. BUSILVEX [Suspect]
     Active Substance: BUSULFAN
     Dosage: 198 MG, UNK
     Route: 042
     Dates: start: 20141008, end: 20141008
  6. PHENOXYMETHYLPENICILLIN [Concomitant]
     Active Substance: PENICILLIN V
     Indication: PROPHYLAXIS
     Dosage: UNK
     Route: 048
     Dates: start: 20141110, end: 20160119

REACTIONS (1)
  - Hepatic enzyme increased [Recovered/Resolved]

NARRATIVE: CASE EVENT DATE: 20150507
